FAERS Safety Report 9343609 (Version 3)
Quarter: 2014Q1

REPORT INFORMATION
  Report Type: Spontaneous
  Country: GB (occurrence: None)
  Receive Date: 20130610
  Receipt Date: 20140131
  Transmission Date: 20141002
  Serious: Yes (Other)
  Sender: FDA-Public Use
  Company Number: AUR-APL-2013-04661

PATIENT
  Age: 74 Year
  Sex: Female

DRUGS (12)
  1. CLOPIDOGREL [Suspect]
     Indication: PRODUCT USED FOR UNKNOWN INDICATION
  2. ASPIRIN (ACETYLSALICYLIC ACID) [Concomitant]
  3. ATENOLOL (ATENOLOL) [Concomitant]
  4. BENDROFLUMETHAZIDE (BENDROFLUMETHAZIDE) [Concomitant]
  5. CACIT VITAMIN D3 (LEKOVIT CA) [Concomitant]
  6. FERROUS SULPHATE (FERROUS SULFATE) [Concomitant]
  7. GLICLAZIDE (GLICLAZIDE) [Concomitant]
  8. GLUCOPHAGE (METFORMIN HYDROCHLORIDE) [Concomitant]
  9. LISINOPRIL (LISINOPRIL) [Concomitant]
  10. OMEPRAZOLE (OMEPRAZOLE) [Concomitant]
  11. QUININE BISULPHATE (QUININE BISULFATE) [Concomitant]
  12. SOLVAZINC (ZINC SULFATE) [Concomitant]

REACTIONS (3)
  - Vomiting [None]
  - Malaise [None]
  - Throat irritation [None]
